FAERS Safety Report 8885893 (Version 1)
Quarter: 2012Q4

REPORT INFORMATION
  Report Type: 
  Country: US (occurrence: US)
  Receive Date: 20121105
  Receipt Date: 20121105
  Transmission Date: 20130627
  Serious: No
  Sender: FDA-Public Use
  Company Number: US-PFIZER INC-2012269353

PATIENT
  Age: 3 Year
  Sex: Male
  Weight: 21.7 kg

DRUGS (1)
  1. SOLU-MEDROL [Suspect]
     Indication: BRONCHOSPASM
     Dosage: 20/0.5 mg/ml, once
     Route: 042
     Dates: start: 20120630

REACTIONS (1)
  - Urticaria [Unknown]
